FAERS Safety Report 20992504 (Version 2)
Quarter: 2022Q3

REPORT INFORMATION
  Report Type: Spontaneous
  Country: US (occurrence: US)
  Receive Date: 20220622
  Receipt Date: 20220720
  Transmission Date: 20221027
  Serious: No
  Sender: FDA-Public Use
  Company Number: US-JNJFOC-20220629871

PATIENT
  Age: 63 Year
  Sex: Female
  Weight: 79.450 kg

DRUGS (6)
  1. STELARA [Suspect]
     Active Substance: USTEKINUMAB
     Indication: Psoriasis
     Route: 058
     Dates: start: 20220101, end: 20220401
  2. STELARA [Suspect]
     Active Substance: USTEKINUMAB
     Route: 058
     Dates: start: 20210908, end: 20220323
  3. DOXEPIN [Concomitant]
     Active Substance: DOXEPIN
  4. FLUOCINOLONE [Concomitant]
     Active Substance: FLUOCINOLONE
  5. TRIAMCINOLONE [Concomitant]
     Active Substance: TRIAMCINOLONE
  6. CICLOPIROX [Concomitant]
     Active Substance: CICLOPIROX

REACTIONS (2)
  - Psoriasis [Not Recovered/Not Resolved]
  - Drug ineffective [Unknown]

NARRATIVE: CASE EVENT DATE: 20220323
